FAERS Safety Report 16641793 (Version 2)
Quarter: 2020Q1

REPORT INFORMATION
  Report Type: Spontaneous
  Country: HU (occurrence: HU)
  Receive Date: 20190729
  Receipt Date: 20200201
  Transmission Date: 20200409
  Serious: Yes (Death, Life-Threatening, Hospitalization, Other)
  Sender: FDA-Public Use
  Company Number: HU-AXELLIA-002609

PATIENT
  Age: 78 Year
  Sex: Male

DRUGS (21)
  1. AVIBACTAM/CEFTAZIDIME [Suspect]
     Active Substance: AVIBACTAM SODIUM\CEFTAZIDIME
     Indication: SEPSIS
     Dosage: 2.5 MG
     Route: 042
     Dates: start: 20180707
  2. FOSFOMYCIN [Suspect]
     Active Substance: FOSFOMYCIN
     Indication: PRODUCT USED FOR UNKNOWN INDICATION
     Dosage: UNK, 3 G, DAILY
     Route: 048
  3. CEFTAZIDIME. [Suspect]
     Active Substance: CEFTAZIDIME
     Indication: PSEUDOMONAS INFECTION
     Dosage: UNK MG
  4. CILASTATIN SODIUM/IMIPENEM [Suspect]
     Active Substance: CILASTATIN SODIUM\IMIPENEM
     Indication: ENTEROCOCCAL INFECTION
     Dosage: UNK (FOR 5 DAYS), 500 MG, BID
     Route: 042
  5. CEFUROXIME. [Suspect]
     Active Substance: CEFUROXIME
     Indication: ENTEROBACTER INFECTION
     Dosage: UNK (FOR 6 DAYS) 1.5 G, TID
     Route: 042
  6. METRONIDAZOLE. [Suspect]
     Active Substance: METRONIDAZOLE
     Indication: PROPHYLAXIS
     Dosage: UNK, 100 ML, TID
     Route: 042
  7. METHENAMINE [Concomitant]
     Active Substance: METHENAMINE
  8. CEFUROXIME. [Suspect]
     Active Substance: CEFUROXIME
     Indication: ESCHERICHIA INFECTION
     Dosage: UNK (FOR 6 DAYS)
  9. CILASTATIN SODIUM/IMIPENEM [Suspect]
     Active Substance: CILASTATIN SODIUM\IMIPENEM
     Indication: ENTEROCOCCAL INFECTION
     Dosage: UNK (FOR 5 DAYS), 500 MG, QID
     Route: 042
  10. MEROPENEM. [Suspect]
     Active Substance: MEROPENEM
     Indication: PRODUCT USED FOR UNKNOWN INDICATION
     Dosage: UNK (FOR 3 DAYS),1 G, BID
     Route: 051
  11. ASCORBIC ACID. [Concomitant]
     Active Substance: ASCORBIC ACID
  12. FIDAXOMICIN [Suspect]
     Active Substance: FIDAXOMICIN
     Indication: CLOSTRIDIUM DIFFICILE INFECTION
     Dosage: UNK (FOR 10 DAYS),200 MG, BID
  13. SULFAMETHOXAZOLE/TRIMETHOPRIM [Suspect]
     Active Substance: SULFAMETHOXAZOLE\TRIMETHOPRIM
     Indication: CITROBACTER INFECTION
     Dosage: UNK, 400/80 MG
     Route: 048
  14. AVIBACTAM/CEFTAZIDIME [Suspect]
     Active Substance: AVIBACTAM SODIUM\CEFTAZIDIME
     Indication: PNEUMONIA KLEBSIELLA
     Dosage: 2.5 MG
     Route: 042
     Dates: start: 20180707, end: 20180713
  15. GENTAMICIN. [Suspect]
     Active Substance: GENTAMICIN
     Indication: ENTEROBACTER INFECTION
     Dosage: UNK (FOR 6 DAYS WITH CEFTAZIDIME)
  16. BETADINE [Concomitant]
     Active Substance: POVIDONE-IODINE
  17. CEFTAZIDIME. [Suspect]
     Active Substance: CEFTAZIDIME
     Indication: ENTEROBACTER INFECTION
     Dosage: UNK, 2 G, TID
     Route: 042
  18. VANCOMYCIN [Suspect]
     Active Substance: VANCOMYCIN
     Indication: CLOSTRIDIAL INFECTION
     Dosage: 125 MG, QID
     Route: 048
  19. AMOXICILLIN AND CLAVULANATE POTASSIUM [Suspect]
     Active Substance: AMOXICILLIN\CLAVULANATE POTASSIUM
     Indication: PROPHYLAXIS
     Dosage: UNK, 1.2 G, TID
     Route: 042
  20. GENTAMICIN. [Suspect]
     Active Substance: GENTAMICIN
     Indication: PSEUDOMONAS INFECTION
     Dosage: UNK (FOR 6 DAYS WITH CEFTAZIDIME),160 MG, DAILY
  21. PIPERACILLIN/TAZOBACTAM [Suspect]
     Active Substance: PIPERACILLIN SODIUM\TAZOBACTAM SODIUM
     Indication: ANTIBIOTIC THERAPY
     Dosage: UNK (TAKEN FOR 6 DAYS), 4.5 G, QID
     Route: 042

REACTIONS (16)
  - Drug resistance [Unknown]
  - Malaise [Unknown]
  - Septic shock [Fatal]
  - Hypoxia [Unknown]
  - Anaemia [Unknown]
  - Melaena [Unknown]
  - Dyspnoea [Unknown]
  - Sepsis [Recovered/Resolved]
  - Clostridium difficile infection [Recovered/Resolved]
  - Respiratory failure [Unknown]
  - Diarrhoea [Unknown]
  - Gastroenteritis [Unknown]
  - Pathogen resistance [Fatal]
  - Pyrexia [Unknown]
  - Chest pain [Unknown]
  - Chills [Unknown]

NARRATIVE: CASE EVENT DATE: 20180718
